FAERS Safety Report 8956968 (Version 1)
Quarter: 2012Q4

REPORT INFORMATION
  Report Type: Report from Study
  Country: FR (occurrence: FR)
  Receive Date: 20121211
  Receipt Date: 20121211
  Transmission Date: 20130627
  Serious: Yes (Death, Hospitalization)
  Sender: FDA-Public Use
  Company Number: PHHO2012FR017550

PATIENT
  Age: 49 Year
  Sex: Male
  Weight: 61 kg

DRUGS (5)
  1. AFINITOR [Suspect]
     Indication: TRANSITIONAL CELL CARCINOMA
     Dosage: 10 mg, a day
     Route: 048
     Dates: start: 20121004
  2. VESICARE [Concomitant]
  3. TARDYFERON [Concomitant]
  4. OSTRAM [Concomitant]
  5. UN ALFA [Concomitant]

REACTIONS (2)
  - Death [Fatal]
  - Haematuria [Unknown]
